FAERS Safety Report 4357148-X (Version None)
Quarter: 2004Q2

REPORT INFORMATION
  Report Type: 
  Country: None (occurrence: None)
  Receive Date: 20040511
  Receipt Date: 20040430
  Transmission Date: 20050107
  Serious: Yes (Death)
  Sender: FDA-Public Use
  Company Number: US-SHR-03-018489

PATIENT
  Age: 46 Year
  Sex: Female
  Weight: 68 kg

DRUGS (1)
  1. BETASERON [Suspect]
     Indication: MULTIPLE SCLEROSIS
     Dosage: EVERY 2D, SUBCUTANEOUS
     Route: 058
     Dates: start: 19950321

REACTIONS (1)
  - PULMONARY EMBOLISM [None]
